FAERS Safety Report 5577792-1 (Version None)
Quarter: 2007Q4

REPORT INFORMATION
  Report Type: 
  Country: None (occurrence: None)
  Receive Date: 20071231
  Receipt Date: 20071206
  Transmission Date: 20080405
  Serious: Yes (Hospitalization, Other)
  Sender: FDA-Public Use
  Company Number: JP-PFIZER INC-2007095802

PATIENT
  Sex: Female
  Weight: 3.5 kg

DRUGS (5)
  1. SOLANAX [Suspect]
     Indication: POSTPARTUM DEPRESSION
     Route: 048
     Dates: start: 20071028, end: 20071028
  2. RESLIN [Suspect]
     Indication: POSTPARTUM DEPRESSION
     Route: 048
  3. AMOXAN [Suspect]
     Indication: POSTPARTUM DEPRESSION
     Route: 048
  4. TOFRANIL [Suspect]
     Indication: POSTPARTUM DEPRESSION
     Route: 048
  5. ALL OTHER THERAPEUTIC PRODUCTS [Concomitant]

REACTIONS (14)
  - ASPARTATE AMINOTRANSFERASE INCREASED [None]
  - BLOOD LACTATE DEHYDROGENASE INCREASED [None]
  - DECREASED ACTIVITY [None]
  - DRUG EXPOSURE DURING PREGNANCY [None]
  - FEEDING DISORDER [None]
  - FOETAL DISTRESS SYNDROME [None]
  - HYPERTONIA [None]
  - IRRITABILITY [None]
  - LEUKOCYTOSIS [None]
  - MECONIUM STAIN [None]
  - NEONATAL DISORDER [None]
  - PYREXIA [None]
  - THROMBOCYTHAEMIA [None]
  - TREMOR [None]
